FAERS Safety Report 9386599 (Version 1)
Quarter: 2013Q3

REPORT INFORMATION
  Report Type: Spontaneous
  Country: US (occurrence: US)
  Receive Date: 20130708
  Receipt Date: 20130708
  Transmission Date: 20140515
  Serious: Yes (Other)
  Sender: FDA-Public Use
  Company Number: PHEH2013US014262

PATIENT
  Sex: Female

DRUGS (2)
  1. CARBAMAZEPINE [Suspect]
     Dosage: UNK UKN, UNK
  2. TRANXENE [Concomitant]
     Dosage: UNK UKN, UNK

REACTIONS (1)
  - Convulsion [Unknown]
